FAERS Safety Report 5128143-8 (Version None)
Quarter: 2006Q4

REPORT INFORMATION
  Report Type: 
  Country: None (occurrence: None)
  Receive Date: 20061017
  Receipt Date: 20061005
  Transmission Date: 20070319
  Serious: Yes (Disabling, Other)
  Sender: FDA-Public Use
  Company Number: PHBS2006IT15715

PATIENT
  Age: 77 Year
  Sex: Female

DRUGS (1)
  1. ZOMETA [Suspect]
     Indication: MULTIPLE MYELOMA
     Dosage: 4 MG, QMO
     Route: 042
     Dates: start: 20030101, end: 20060201

REACTIONS (5)
  - GINGIVAL SWELLING [None]
  - INFECTION [None]
  - OSTEOMYELITIS [None]
  - PAIN IN JAW [None]
  - TOOTH EXTRACTION [None]
